FAERS Safety Report 9503608 (Version 1)
Quarter: 2013Q3

REPORT INFORMATION
  Report Type: Spontaneous
  Country: DK (occurrence: GB)
  Receive Date: 20130906
  Receipt Date: 20130906
  Transmission Date: 20140515
  Serious: Yes (Hospitalization, Other)
  Sender: FDA-Public Use
  Company Number: GB-FRI-1000048442

PATIENT
  Age: 66 Year
  Sex: Male

DRUGS (9)
  1. CITALOPRAM [Suspect]
     Dosage: 20 MG
     Route: 048
  2. AMITRIPTYLINE [Suspect]
     Dosage: 10 MG
     Route: 048
  3. BENDROFLUMETHIAZIDE [Suspect]
     Dosage: 2.5 MG
     Route: 048
  4. QUETIAPINE [Suspect]
     Dosage: 200 MG
     Route: 048
  5. AMOXICILLIN [Concomitant]
     Dosage: 1500 MG
  6. FELODIPINE [Concomitant]
     Dosage: 5 MG
  7. SIMVASTATIN [Concomitant]
     Dosage: 40 MG
  8. TESTOGEL [Concomitant]
     Dosage: 50 MG
  9. TRAMADOL [Concomitant]
     Dosage: 400 MG

REACTIONS (3)
  - Hyponatraemia [Recovered/Resolved]
  - Confusional state [Unknown]
  - Balance disorder [Unknown]
